FAERS Safety Report 16349658 (Version 1)
Quarter: 2019Q2

REPORT INFORMATION
  Report Type: Spontaneous
  Country: CO (occurrence: CO)
  Receive Date: 20190523
  Receipt Date: 20190523
  Transmission Date: 20190711
  Serious: Yes (Disabling, Other)
  Sender: FDA-Public Use
  Company Number: CO-PFIZER INC-2019198008

PATIENT
  Age: 1 Month
  Sex: Female
  Weight: 4.4 kg

DRUGS (1)
  1. PROSTIN [Suspect]
     Active Substance: ALPROSTADIL
     Indication: PATENT DUCTUS ARTERIOSUS
     Dosage: 30 NG/KG/MIN, CONTINUOUS INFUSION
     Route: 042
     Dates: start: 20190307, end: 20190505

REACTIONS (1)
  - Bone hypertrophy [Not Recovered/Not Resolved]

NARRATIVE: CASE EVENT DATE: 20190426
